FAERS Safety Report 4559149-5 (Version None)
Quarter: 2005Q1

REPORT INFORMATION
  Report Type: 
  Country: None (occurrence: None)
  Receive Date: 20050121
  Receipt Date: 20050121
  Transmission Date: 20050727
  Serious: Yes (Other)
  Sender: FDA-Public Use
  Company Number: None

PATIENT
  Sex: Female
  Weight: 53.5244 kg

DRUGS (1)
  1. ZICAM [Suspect]
     Dosage: 1 SQUIRT   1 X DAY   NASAL
     Route: 045
     Dates: start: 20050117, end: 20050119

REACTIONS (2)
  - ANOSMIA [None]
  - NASAL DISCOMFORT [None]
